FAERS Safety Report 4930141-1 (Version None)
Quarter: 2006Q1

REPORT INFORMATION
  Report Type: 
  Country: None (occurrence: None)
  Receive Date: 20060302
  Receipt Date: 20060221
  Transmission Date: 20060701
  Serious: Yes (Other)
  Sender: FDA-Public Use
  Company Number: CA-NOVOPROD-251047

PATIENT
  Age: 51 Year
  Sex: Male
  Weight: 113 kg

DRUGS (6)
  1. LEVEMIR [Suspect]
     Indication: INSULIN-REQUIRING TYPE II DIABETES MELLITUS
     Dosage: 25 IU AT SUPPER
     Dates: start: 20060213
  2. ROSIGLITAZONE MALEATE [Concomitant]
  3. GLICLAZIDE [Concomitant]
  4. METFORMIN [Concomitant]
  5. RAMIPRIL [Concomitant]
  6. ATORVASTATIN [Concomitant]

REACTIONS (4)
  - INJECTION SITE ERYTHEMA [None]
  - INJECTION SITE MASS [None]
  - INJECTION SITE PRURITUS [None]
  - INJECTION SITE ULCER [None]
